FAERS Safety Report 5722652-6 (Version None)
Quarter: 2008Q2

REPORT INFORMATION
  Report Type: 
  Country: None (occurrence: None)
  Receive Date: 20080429
  Receipt Date: 20070910
  Transmission Date: 20081010
  Serious: No
  Sender: FDA-Public Use
  Company Number: US-ASTRAZENECA-2007UW21276

PATIENT
  Sex: Female

DRUGS (4)
  1. NEXIUM [Suspect]
     Route: 048
  2. COUMADIN [Concomitant]
     Route: 048
  3. PLAVIX [Concomitant]
     Route: 048
  4. DETROL [Concomitant]
     Route: 048

REACTIONS (2)
  - CHOKING SENSATION [None]
  - THROAT IRRITATION [None]
